FAERS Safety Report 21291810 (Version 1)
Quarter: 2022Q3

REPORT INFORMATION
  Report Type: Spontaneous
  Country: US (occurrence: US)
  Receive Date: 20220903
  Receipt Date: 20220903
  Transmission Date: 20221027
  Serious: No
  Sender: FDA-Public Use
  Company Number: US-DSJP-DSU-2022-131897

PATIENT
  Sex: Female

DRUGS (3)
  1. ENHERTU [Suspect]
     Active Substance: FAM-TRASTUZUMAB DERUXTECAN-NXKI
     Indication: Breast cancer metastatic
     Dosage: UNK
  2. CISPLATIN [Suspect]
     Active Substance: CISPLATIN
     Indication: Breast cancer metastatic
     Dosage: UNK
  3. PEMETREXED [Suspect]
     Active Substance: PEMETREXED
     Indication: Breast cancer metastatic
     Dosage: UNK

REACTIONS (2)
  - Feeling cold [Unknown]
  - Nausea [Unknown]
